FAERS Safety Report 5469008-1 (Version None)
Quarter: 2007Q3

REPORT INFORMATION
  Report Type: 
  Country: None (occurrence: None)
  Receive Date: 20070820
  Receipt Date: 20070619
  Transmission Date: 20080115
  Serious: No
  Sender: FDA-Public Use
  Company Number: WAES 0706USA03265

PATIENT
  Age: 76 Year
  Sex: Female
  Weight: 64.4108 kg

DRUGS (6)
  1. JANUVIA [Suspect]
     Indication: DIABETES MELLITUS
     Dosage: 100 MG/DAILY/PO
     Route: 048
     Dates: start: 20070531, end: 20070606
  2. DITROPAN [Concomitant]
  3. GLUCOPHAGE [Concomitant]
  4. ZOCOR [Concomitant]
  5. ASPIRIN [Concomitant]
  6. GLYBURIDE [Concomitant]

REACTIONS (3)
  - EYE PRURITUS [None]
  - RASH [None]
  - SWELLING FACE [None]
